FAERS Safety Report 5201362-8 (Version None)
Quarter: 2006Q4

REPORT INFORMATION
  Report Type: 
  Country: None (occurrence: None)
  Receive Date: 20061016
  Receipt Date: 20060705
  Transmission Date: 20070319
  Serious: Yes (Hospitalization, Disabling, Other)
  Sender: FDA-Public Use
  Company Number: 28700

PATIENT
  Sex: Male
  Weight: 72.5755 kg

DRUGS (1)
  1. CYTARABINE [Suspect]
     Indication: NON-HODGKIN'S LYMPHOMA
     Dates: start: 20050801

REACTIONS (4)
  - ASTHENIA [None]
  - DIZZINESS [None]
  - PARAPLEGIA [None]
  - PHARYNGITIS [None]
